FAERS Safety Report 13412526 (Version 3)
Quarter: 2020Q1

REPORT INFORMATION
  Report Type: Spontaneous
  Country: US (occurrence: US)
  Receive Date: 20170406
  Receipt Date: 20200117
  Transmission Date: 20200409
  Serious: No
  Sender: FDA-Public Use
  Company Number: US-JNJFOC-20170307845

PATIENT
  Sex: Male

DRUGS (5)
  1. RISPERDAL [Suspect]
     Active Substance: RISPERIDONE
     Route: 048
     Dates: start: 20140114
  2. RISPERDAL M-TAB [Suspect]
     Active Substance: RISPERIDONE
     Indication: SCHIZOPHRENIA
     Dosage: 1 MG AND 2 MG
     Route: 048
     Dates: start: 20060818
  3. RISPERDAL CONSTA [Suspect]
     Active Substance: RISPERIDONE
     Indication: SCHIZOPHRENIA
     Dosage: VARYING DOSES OF 25, 37.5  AND 50 MG, VARYING FREQUENCIES
     Route: 030
     Dates: start: 20061218, end: 20111119
  4. RISPERDAL [Suspect]
     Active Substance: RISPERIDONE
     Indication: SCHIZOPHRENIA
     Dosage: VARYING DOSES OF 0.5, 01, 02, 03 MG
     Route: 048
     Dates: start: 20060807, end: 20090514
  5. RISPERIDONE. [Suspect]
     Active Substance: RISPERIDONE
     Indication: SCHIZOPHRENIA
     Dosage: VARYING DOSES OF 03, 04 MG
     Route: 048
     Dates: start: 20111222, end: 20130718

REACTIONS (2)
  - Gynaecomastia [Unknown]
  - Emotional distress [Unknown]
